FAERS Safety Report 7743450-8 (Version None)
Quarter: 2011Q3

REPORT INFORMATION
  Report Type: 
  Country: None (occurrence: None)
  Receive Date: 20110912
  Receipt Date: 20110906
  Transmission Date: 20111222
  Serious: Yes (Hospitalization)
  Sender: FDA-Public Use
  Company Number: US-B.I. PHARMACEUTICALS,INC./RIDGEFIELD-2011-BP-16927BP

PATIENT
  Age: 64 Year
  Sex: Male

DRUGS (7)
  1. PRADAXA [Suspect]
     Indication: PULMONARY EMBOLISM
  2. TIOTROPIUM [Concomitant]
  3. TAMSULOSIN HCL [Concomitant]
  4. METOPROLOL SUCCINATE [Concomitant]
  5. HYDRALAZINE/ISOSORBIDE [Concomitant]
  6. PRADAXA [Suspect]
     Indication: EMBOLISM VENOUS
     Dosage: 300 MG
     Route: 048
     Dates: start: 20110401, end: 20110603
  7. ENALAPRIL MALEATE [Concomitant]

REACTIONS (1)
  - DYSPNOEA [None]
